FAERS Safety Report 13323292 (Version 1)
Quarter: 2017Q1

REPORT INFORMATION
  Report Type: Spontaneous
  Country: US (occurrence: US)
  Receive Date: 20170310
  Receipt Date: 20170310
  Transmission Date: 20170428
  Serious: No
  Sender: FDA-Public Use
  Company Number: US-LUNDBECK-DKLU2026942

PATIENT
  Age: 53 Year
  Sex: Male

DRUGS (1)
  1. NORTHERA [Suspect]
     Active Substance: DROXIDOPA
     Indication: ORTHOSTATIC HYPOTENSION
     Route: 048
     Dates: start: 20170219

REACTIONS (3)
  - Nasopharyngitis [Unknown]
  - Blood pressure increased [Unknown]
  - Cough [Unknown]

NARRATIVE: CASE EVENT DATE: 201702
